FAERS Safety Report 6124544-X (Version None)
Quarter: 2009Q1

REPORT INFORMATION
  Report Type: 
  Country: None (occurrence: None)
  Receive Date: 20090317
  Receipt Date: 20090317
  Transmission Date: 20090719
  Serious: Yes (Other)
  Sender: FDA-Public Use
  Company Number: None

PATIENT
  Age: 70 Year
  Sex: Female
  Weight: 53.978 kg

DRUGS (2)
  1. KENALOG [Suspect]
     Indication: ARTHRITIS
     Dosage: UNK 1 PERIARTICULAR ONE TIME
     Route: 052
  2. BUVIVIDICAINE UNK UNK [Suspect]
     Indication: ARTHRITIS
     Dosage: 0.251 1 PERIARTICULAR ONE TIME
     Route: 052

REACTIONS (14)
  - AGITATION [None]
  - ARRHYTHMIA [None]
  - CONTUSION [None]
  - DISTURBANCE IN ATTENTION [None]
  - ENERGY INCREASED [None]
  - EUPHORIC MOOD [None]
  - HUNGER [None]
  - ILL-DEFINED DISORDER [None]
  - INSOMNIA [None]
  - JOINT SWELLING [None]
  - OEDEMA PERIPHERAL [None]
  - POLLAKIURIA [None]
  - THIRST [None]
  - WEIGHT INCREASED [None]
